FAERS Safety Report 24944126 (Version 1)
Quarter: 2025Q1

REPORT INFORMATION
  Report Type: Spontaneous
  Country: HR (occurrence: HR)
  Receive Date: 20250207
  Receipt Date: 20250207
  Transmission Date: 20250409
  Serious: Yes (Hospitalization)
  Sender: AMGEN
  Company Number: HR-002147023-NVSC2025HR017878

PATIENT
  Age: 42 Year
  Sex: Female

DRUGS (5)
  1. AIMOVIG [Suspect]
     Active Substance: ERENUMAB-AOOE
     Indication: Migraine
     Dosage: 70 MG, Q4W
     Route: 058
     Dates: start: 201905, end: 202007
  2. AIMOVIG [Suspect]
     Active Substance: ERENUMAB-AOOE
     Dosage: 70 MG, Q4W
     Route: 058
     Dates: start: 202011, end: 202201
  3. AIMOVIG [Suspect]
     Active Substance: ERENUMAB-AOOE
     Dosage: 140 MG, Q4W
     Route: 058
     Dates: start: 202201
  4. Triptan [Concomitant]
     Indication: Headache
     Route: 065
  5. PROPRANOLOL [Concomitant]
     Active Substance: PROPRANOLOL HYDROCHLORIDE
     Indication: Product used for unknown indication
     Route: 065
     Dates: start: 201509

REACTIONS (9)
  - Iron deficiency anaemia [Unknown]
  - Headache [Recovering/Resolving]
  - Tension headache [Unknown]
  - Depression [Recovered/Resolved]
  - Disturbance in attention [Recovered/Resolved]
  - Neck pain [Unknown]
  - Paraesthesia [Unknown]
  - Intervertebral disc protrusion [Unknown]
  - Stress [Unknown]

NARRATIVE: CASE EVENT DATE: 20220101
